FAERS Safety Report 7492183-4 (Version None)
Quarter: 2011Q2

REPORT INFORMATION
  Report Type: 
  Country: None (occurrence: None)
  Receive Date: 20110519
  Receipt Date: 20110509
  Transmission Date: 20111010
  Serious: Yes (Other)
  Sender: FDA-Public Use
  Company Number: SA-GENENTECH-318884

PATIENT
  Age: 11 Year
  Sex: Male

DRUGS (1)
  1. RITUXIMAB [Suspect]
     Indication: NEPHROTIC SYNDROME
     Dosage: 375 MG/M2, UNK
     Route: 065

REACTIONS (1)
  - PERITONITIS [None]
